FAERS Safety Report 11468533 (Version 1)
Quarter: 2015Q3

REPORT INFORMATION
  Report Type: Spontaneous
  Country: None (occurrence: None)
  Receive Date: 20150904
  Receipt Date: 20150904
  Transmission Date: 20151125
  Serious: Yes (Hospitalization, Other)
  Sender: FDA-Public Use
  Company Number: None

PATIENT
  Age: 55 Year
  Sex: Female
  Weight: 92.99 kg

DRUGS (13)
  1. LAOTRIGINE [Concomitant]
  2. LAMOTRIGINE 150MG TEVA [Suspect]
     Active Substance: LAMOTRIGINE
     Indication: SEIZURE
     Route: 048
  3. LAMOTRIGINE 150MG TEVA [Suspect]
     Active Substance: LAMOTRIGINE
     Indication: BIPOLAR DISORDER
     Route: 048
  4. PNEUMONIA [Concomitant]
  5. NITROSTAT [Concomitant]
     Active Substance: NITROGLYCERIN
  6. HYDROCHOROTHIAZIDE [Concomitant]
     Active Substance: HYDROCHLOROTHIAZIDE
  7. FLAX SEED [Concomitant]
     Active Substance: FLAX SEED
  8. C-PAC [Concomitant]
  9. KEPPRA [Concomitant]
     Active Substance: LEVETIRACETAM
  10. CLONIDINE. [Concomitant]
     Active Substance: CLONIDINE
  11. LISINOPRIL. [Concomitant]
     Active Substance: LISINOPRIL
  12. BYSTOLIC [Concomitant]
     Active Substance: NEBIVOLOL HYDROCHLORIDE
  13. CENTRIUM [Concomitant]

REACTIONS (5)
  - Fall [None]
  - Drug hypersensitivity [None]
  - Dizziness [None]
  - Insomnia [None]
  - Syncope [None]
